FAERS Safety Report 9635560 (Version 1)
Quarter: 2013Q4

REPORT INFORMATION
  Report Type: Spontaneous
  Country: US (occurrence: US)
  Receive Date: 20131021
  Receipt Date: 20131021
  Transmission Date: 20140711
  Serious: No
  Sender: FDA-Public Use
  Company Number: US-PURDUE-USA-2013-0103508

PATIENT
  Sex: Male

DRUGS (2)
  1. BUTRANS [Suspect]
     Indication: PAIN
     Dosage: 10 MCG/HR, UNK
     Route: 062
  2. TRAMADOL                           /00599202/ [Concomitant]
     Indication: PAIN
     Route: 065

REACTIONS (3)
  - Drug withdrawal syndrome [Unknown]
  - Aphasia [Unknown]
  - Somnolence [Unknown]
